FAERS Safety Report 11234959 (Version 1)
Quarter: 2015Q3

REPORT INFORMATION
  Report Type: Spontaneous
  Country: US (occurrence: US)
  Receive Date: 20150702
  Receipt Date: 20150702
  Transmission Date: 20151125
  Serious: No
  Sender: FDA-Public Use
  Company Number: US-TEVA-574542USA

PATIENT
  Sex: Female

DRUGS (1)
  1. COPAXONE [Suspect]
     Active Substance: GLATIRAMER ACETATE
     Indication: MULTIPLE SCLEROSIS
     Dosage: FORM STRENGTH UNKNOWN
     Route: 065

REACTIONS (6)
  - Dyspnoea [Unknown]
  - Immediate post-injection reaction [Unknown]
  - Injection site urticaria [Unknown]
  - Anger [Unknown]
  - Injection site pain [Unknown]
  - Anxiety [Unknown]
